FAERS Safety Report 15037934 (Version 1)
Quarter: 2018Q2

REPORT INFORMATION
  Report Type: Report from Study
  Country: IN (occurrence: IN)
  Receive Date: 20180620
  Receipt Date: 20180620
  Transmission Date: 20180711
  Serious: Yes (Other)
  Sender: FDA-Public Use
  Company Number: PHHY2018IN025518

PATIENT
  Sex: Male

DRUGS (2)
  1. TRAVATAN [Suspect]
     Active Substance: TRAVOPROST
     Indication: GLAUCOMA
     Dosage: 1 GTT, QD
     Route: 031
     Dates: start: 20180226
  2. GLYMINE [Concomitant]
     Indication: DIABETES MELLITUS
     Dosage: 2 DF, QD
     Route: 048

REACTIONS (2)
  - Blindness [Not Recovered/Not Resolved]
  - Concomitant disease aggravated [Not Recovered/Not Resolved]
